FAERS Safety Report 8262399-8 (Version None)
Quarter: 2012Q2

REPORT INFORMATION
  Report Type: 
  Country: None (occurrence: None)
  Receive Date: 20120405
  Receipt Date: 20120329
  Transmission Date: 20120825
  Serious: Yes (Other)
  Sender: FDA-Public Use
  Company Number: US-JNJFOC-20120314871

PATIENT
  Sex: Female
  Weight: 84.37 kg

DRUGS (6)
  1. FUROSEMIDE [Concomitant]
     Route: 048
     Dates: start: 20120301
  2. AMLODIPINE [Concomitant]
     Indication: BLOOD PRESSURE
     Route: 048
     Dates: start: 20110101
  3. OMEPRAZOLE [Concomitant]
     Indication: GASTROOESOPHAGEAL REFLUX DISEASE
     Route: 048
     Dates: start: 20110101
  4. LOSARTAN POTASSIUM [Concomitant]
     Indication: BLOOD CHOLESTEROL
     Route: 048
  5. SIMPONI [Suspect]
     Indication: RHEUMATOID ARTHRITIS
     Route: 058
     Dates: start: 20110801
  6. FUROSEMIDE [Concomitant]
     Indication: BLOOD PRESSURE
     Route: 048
     Dates: start: 20110101, end: 20120301

REACTIONS (7)
  - GASTROOESOPHAGEAL REFLUX DISEASE [None]
  - RHEUMATOID ARTHRITIS [None]
  - SLUGGISHNESS [None]
  - SINUSITIS [None]
  - RASH PRURITIC [None]
  - CELLULITIS [None]
  - SOMNOLENCE [None]
